FAERS Safety Report 8796584 (Version 2)
Quarter: 2012Q4

REPORT INFORMATION
  Report Type: 
  Country: US (occurrence: US)
  Receive Date: 20120919
  Receipt Date: 20121203
  Transmission Date: 20130627
  Serious: Yes (Life-Threatening, Hospitalization)
  Sender: FDA-Public Use
  Company Number: US-ELI_LILLY_AND_COMPANY-US201209004371

PATIENT
  Age: 85 Year
  Sex: Male

DRUGS (6)
  1. HUMATROPE [Suspect]
     Indication: HYPOPITUITARISM
     Dosage: 0.8mg, daily
     Route: 058
     Dates: start: 200109, end: 20120921
  2. HUMATROPE [Suspect]
     Dosage: 0.8mg, daily
     Dates: start: 20120924
  3. CORTISOL [Concomitant]
     Indication: HYPOPITUITARISM
  4. THYROXINE [Concomitant]
     Dosage: 125mcg, daily
  5. ANDROGEL [Concomitant]
     Dosage: 2.5 gr, daily
  6. VITAMIN D [Concomitant]
     Dosage: 50,000U/ weekly

REACTIONS (8)
  - Septic shock [Recovered/Resolved]
  - Bile duct stone [Recovered/Resolved]
  - Diverticulitis [Recovered/Resolved]
  - Gastrooesophageal reflux disease [Recovered/Resolved]
  - Pneumonia aspiration [Recovered/Resolved]
  - Gastrointestinal hypomotility [Recovered/Resolved]
  - Cholecystitis acute [Recovered/Resolved]
  - Visual acuity reduced [Not Recovered/Not Resolved]
